FAERS Safety Report 7707575-5 (Version None)
Quarter: 2011Q3

REPORT INFORMATION
  Report Type: 
  Country: None (occurrence: None)
  Receive Date: 20110818
  Receipt Date: 20110815
  Transmission Date: 20111222
  Serious: Yes (Death, Other)
  Sender: FDA-Public Use
  Company Number: 2011SP038529

PATIENT

DRUGS (4)
  1. TEMOZOLOMIDE [Suspect]
     Indication: GLIOBLASTOMA
     Dosage: 75 MG/M2;QD
  2. DEXAMETHASONE [Concomitant]
  3. IRINOTECAN HCL [Suspect]
     Indication: GLIOBLASTOMA
  4. AVASTIN [Suspect]
     Indication: GLIOBLASTOMA
     Dosage: 10 MG/KG

REACTIONS (6)
  - NEUTROPENIA [None]
  - TOXICITY TO VARIOUS AGENTS [None]
  - THROMBOCYTOPENIA [None]
  - NEUTROPENIC SEPSIS [None]
  - PULMONARY EMBOLISM [None]
  - STITCH ABSCESS [None]
